FAERS Safety Report 10232586 (Version 1)
Quarter: 2014Q2

REPORT INFORMATION
  Report Type: Report from Study
  Country: JP (occurrence: None)
  Receive Date: 20140610
  Receipt Date: 20140610
  Transmission Date: 20141212
  Serious: Yes (Death, Life-Threatening)
  Sender: FDA-Public Use
  Company Number: SYM-2014-17970

PATIENT
  Age: 37 Year
  Sex: Male
  Weight: 50 kg

DRUGS (5)
  1. CHOREAZINE [Suspect]
     Indication: HUNTINGTON^S DISEASE
     Route: 048
     Dates: start: 20140109, end: 20140111
  2. LIORESAL (BACLOFEN) (BACLOFEN) [Concomitant]
  3. RIVOTRIL (CLONAZEPAM) (CLONAZEPAM) [Concomitant]
  4. GOODMIN (BROTIZOLAM) (BROTIZOLAM) [Concomitant]
  5. ARTAINE (TRIHEXYPHENIDYL HYDROCHLORIDE) (TRIHEXYPHENIDYL HYDROCHLORIDE) [Concomitant]

REACTIONS (5)
  - Vomiting [None]
  - Pneumonia aspiration [None]
  - Dystonia [None]
  - Pancreatitis acute [None]
  - Multi-organ failure [None]
